FAERS Safety Report 7903935-8 (Version None)
Quarter: 2011Q4

REPORT INFORMATION
  Report Type: 
  Country: None (occurrence: None)
  Receive Date: 20111109
  Receipt Date: 20111028
  Transmission Date: 20120403
  Serious: No
  Sender: FDA-Public Use
  Company Number: US-BAYER-2011-106559

PATIENT
  Age: 68 Year
  Sex: Female

DRUGS (6)
  1. METOPROLOL [Concomitant]
  2. SIMVASTATIN [Concomitant]
  3. ALEVE (CAPLET) [Suspect]
     Indication: MUSCULOSKELETAL PAIN
     Dosage: UNK, BID
     Route: 048
     Dates: start: 20111025
  4. METFORMIN HCL [Concomitant]
  5. DIAVAN [Concomitant]
  6. ADVAIR DISKUS 100/50 [Concomitant]

REACTIONS (1)
  - DIARRHOEA [None]
